FAERS Safety Report 6589400-1 (Version None)
Quarter: 2010Q1

REPORT INFORMATION
  Report Type: 
  Country: None (occurrence: None)
  Receive Date: 20100218
  Receipt Date: 20100205
  Transmission Date: 20100710
  Serious: Yes (Hospitalization)
  Sender: FDA-Public Use
  Company Number: NL-GENENTECH-298035

PATIENT
  Age: 41 Year
  Sex: Female

DRUGS (1)
  1. RITUXIMAB [Suspect]
     Indication: SJOGREN'S SYNDROME
     Dosage: 1000 MG, DAYS 1+15
     Route: 042
     Dates: start: 20090501, end: 20090501

REACTIONS (2)
  - CARDIOMYOPATHY [None]
  - TRANSIENT ISCHAEMIC ATTACK [None]
